FAERS Safety Report 8116741-9 (Version None)
Quarter: 2012Q1

REPORT INFORMATION
  Report Type: 
  Country: None (occurrence: None)
  Receive Date: 20120206
  Receipt Date: 20120127
  Transmission Date: 20120608
  Serious: Yes (Other)
  Sender: FDA-Public Use
  Company Number: PHFR2012GB000955

PATIENT

DRUGS (2)
  1. AFINITOR [Suspect]
     Dosage: 5 MG
  2. AFINITOR [Suspect]
     Indication: RENAL CELL CARCINOMA
     Dosage: UNK UKN, UNK

REACTIONS (6)
  - SPINAL CORD COMPRESSION [None]
  - NEOPLASM PROGRESSION [None]
  - PNEUMONITIS [None]
  - NEOPLASM MALIGNANT [None]
  - LIVER FUNCTION TEST ABNORMAL [None]
  - URINE ANALYSIS ABNORMAL [None]
